FAERS Safety Report 5533309-9 (Version None)
Quarter: 2007Q4

REPORT INFORMATION
  Report Type: 
  Country: None (occurrence: None)
  Receive Date: 20071204
  Receipt Date: 20071126
  Transmission Date: 20080405
  Serious: Yes (Death)
  Sender: FDA-Public Use
  Company Number: US-WYE-H01412907

PATIENT
  Age: 24 Year
  Sex: Male

DRUGS (1)
  1. MYLOTARG [Suspect]
     Indication: ACUTE MYELOID LEUKAEMIA
     Dosage: STANDARD DOSE AND SCHEDULE
     Route: 041

REACTIONS (1)
  - VENOOCCLUSIVE LIVER DISEASE [None]
